FAERS Safety Report 11142538 (Version 7)
Quarter: 2015Q4

REPORT INFORMATION
  Report Type: Report from Study
  Country: NL (occurrence: NL)
  Receive Date: 20150527
  Receipt Date: 20151023
  Transmission Date: 20160304
  Serious: Yes (Hospitalization, Other)
  Sender: FDA-Public Use
  Company Number: NL-ABBVIE-15P-114-1380874-00

PATIENT
  Age: 80 Year
  Sex: Male
  Weight: 75 kg

DRUGS (5)
  1. LUCRIN DEPOT [Suspect]
     Active Substance: LEUPROLIDE ACETATE
     Indication: PROSTATE CANCER
     Route: 058
     Dates: start: 20101216, end: 20150422
  2. FLUTICASONE FUROATE [Concomitant]
     Active Substance: FLUTICASONE FUROATE
     Indication: PRODUCT USED FOR UNKNOWN INDICATION
     Dosage: NASELSPRAY; 2/2 TIMES DAILY
     Route: 045
  3. LUCRIN DEPOT [Suspect]
     Active Substance: LEUPROLIDE ACETATE
     Indication: PROSTATE CANCER
     Route: 058
     Dates: start: 20151014
  4. LOSARTAN. [Concomitant]
     Active Substance: LOSARTAN
     Indication: PRODUCT USED FOR UNKNOWN INDICATION
     Route: 048
  5. PREDNISOLON [Suspect]
     Active Substance: PREDNISOLONE
     Indication: PRODUCT USED FOR UNKNOWN INDICATION
     Route: 048

REACTIONS (13)
  - Painful respiration [Recovered/Resolved]
  - Respiratory tract infection viral [Recovering/Resolving]
  - Chronic obstructive pulmonary disease [Recovering/Resolving]
  - Asthma [Recovering/Resolving]
  - Orthopnoea [Unknown]
  - Connective tissue disorder [Not Recovered/Not Resolved]
  - Cough [Unknown]
  - Influenza [Recovered/Resolved]
  - Dyspnoea [Unknown]
  - Asthma [Recovered/Resolved with Sequelae]
  - Tuberculosis [Not Recovered/Not Resolved]
  - Phrenic nerve paralysis [Unknown]
  - Atelectasis [Unknown]

NARRATIVE: CASE EVENT DATE: 201501
